FAERS Safety Report 4274749-8 (Version None)
Quarter: 2004Q1

REPORT INFORMATION
  Report Type: 
  Country: None (occurrence: None)
  Receive Date: 20040116
  Receipt Date: 20040108
  Transmission Date: 20041129
  Serious: Yes (Hospitalization)
  Sender: FDA-Public Use
  Company Number: TCI2003A04105

PATIENT
  Age: 78 Year
  Sex: Female

DRUGS (7)
  1. ACTOS [Suspect]
     Indication: DIABETES MELLITUS NON-INSULIN-DEPENDENT
     Dosage: 30 MG (30 MG, 1 IN 1 D) PER ORAL
     Route: 048
     Dates: start: 20010418, end: 20010818
  2. AMLODIPINE BESYLATE [Concomitant]
  3. NITROL R (GLYCERYL TRINITRATE) [Concomitant]
  4. METILDIGOXIN [Concomitant]
  5. KEISHIKASHAKUYAKUDAIOUTOU [Concomitant]
  6. POLYCARBOPHIL CALCIUM [Concomitant]
  7. GLYBURIDE [Concomitant]

REACTIONS (2)
  - GASTRIC CANCER [None]
  - GASTRIC ULCER [None]
